FAERS Safety Report 14372586 (Version 2)
Quarter: 2018Q2

REPORT INFORMATION
  Report Type: Spontaneous
  Country: US (occurrence: US)
  Receive Date: 20180110
  Receipt Date: 20180510
  Transmission Date: 20180711
  Serious: No
  Sender: FDA-Public Use
  Company Number: US-PFIZER INC-2018006548

PATIENT
  Age: 62 Year
  Sex: Female
  Weight: 79.37 kg

DRUGS (5)
  1. DOCEFREZ [Suspect]
     Active Substance: DOCETAXEL ANHYDROUS
     Indication: BREAST CANCER
     Dosage: 137 - 144 MG, CYCLIC (EVERY THREE WEEKS)
     Dates: start: 20120702, end: 20121105
  2. DOCETAXEL. [Suspect]
     Active Substance: DOCETAXEL
     Indication: BREAST CANCER
     Dosage: 137 - 144 MG, CYCLIC (EVERY THREE WEEKS)
     Dates: start: 20120702, end: 20121105
  3. DOCETAXEL. [Suspect]
     Active Substance: DOCETAXEL
     Indication: BREAST CANCER
     Dosage: 137 - 144 MG, CYCLIC (EVERY THREE WEEKS)
     Dates: start: 20120702, end: 20121105
  4. TAXOTERE [Suspect]
     Active Substance: DOCETAXEL
     Indication: BREAST CANCER
     Dosage: 137 - 144 MG, CYCLIC (EVERY THREE WEEKS)
     Dates: start: 20120702, end: 20121105
  5. PARAPLATIN [Suspect]
     Active Substance: CARBOPLATIN
     Indication: BREAST CANCER
     Dosage: 511 MG, UNK

REACTIONS (2)
  - Madarosis [Not Recovered/Not Resolved]
  - Alopecia [Not Recovered/Not Resolved]
